FAERS Safety Report 8451442 (Version 2)
Quarter: 2014Q2

REPORT INFORMATION
  Report Type: Spontaneous
  Country: US (occurrence: None)
  Receive Date: 20120216
  Receipt Date: 20140604
  Transmission Date: 20141212
  Serious: Yes (Hospitalization)
  Sender: FDA-Public Use
  Company Number: 20111104CINRY2431

PATIENT
  Age: 50 Year
  Sex: Female
  Weight: 110.68 kg

DRUGS (6)
  1. CINRYZE [Suspect]
     Indication: HEREDITARY ANGIOEDEMA
     Dosage: (1000 IU, 1 IN 3 D), INTRAVENOUS
     Route: 042
     Dates: start: 20100803
  2. CINRYZE [Suspect]
     Indication: PROPHYLAXIS
     Dosage: (1000 IU, 1 IN 3 D), INTRAVENOUS
     Route: 042
     Dates: start: 20100803
  3. CELEXA [Concomitant]
  4. KLONOPIN [Concomitant]
  5. SYNTHROID [Concomitant]
  6. VITAMIN D (ERGOCALCIFEROL) [Concomitant]

REACTIONS (3)
  - Hereditary angioedema [None]
  - Off label use [None]
  - Laryngeal oedema [None]
